FAERS Safety Report 8276783-X (Version None)
Quarter: 2012Q2

REPORT INFORMATION
  Report Type: 
  Country: None (occurrence: None)
  Receive Date: 20120412
  Receipt Date: 20120410
  Transmission Date: 20120825
  Serious: Yes (Other)
  Sender: FDA-Public Use
  Company Number: US-PFIZER INC-2012089809

PATIENT
  Sex: Female
  Weight: 116.1 kg

DRUGS (1)
  1. ALTACE [Suspect]
     Indication: HYPERTENSION
     Dosage: UNK

REACTIONS (3)
  - DIABETES MELLITUS [None]
  - DRUG INEFFECTIVE [None]
  - STRESS URINARY INCONTINENCE [None]
